FAERS Safety Report 5427458-3 (Version None)
Quarter: 2007Q3

REPORT INFORMATION
  Report Type: 
  Country: None (occurrence: None)
  Receive Date: 20070824
  Receipt Date: 20070824
  Transmission Date: 20080115
  Serious: Yes (Other)
  Sender: FDA-Public Use
  Company Number: None

PATIENT
  Age: 46 Year
  Sex: Male
  Weight: 86.1834 kg

DRUGS (1)
  1. ALLI -ORLISTAT 60- 60MG GLAXO KLINE SMITH [Suspect]
     Indication: WEIGHT CONTROL
     Dosage: 60 MG 3 TIMES DAILY PO
     Route: 048
     Dates: start: 20070811, end: 20070818

REACTIONS (5)
  - ALANINE AMINOTRANSFERASE INCREASED [None]
  - ASPARTATE AMINOTRANSFERASE INCREASED [None]
  - BLOOD ALKALINE PHOSPHATASE INCREASED [None]
  - GASTRITIS [None]
  - URINE BILIRUBIN INCREASED [None]
